FAERS Safety Report 15617275 (Version 2)
Quarter: 2019Q1

REPORT INFORMATION
  Report Type: Spontaneous
  Country: US (occurrence: US)
  Receive Date: 20181114
  Receipt Date: 20190322
  Transmission Date: 20190417
  Serious: Yes (Death, Other)
  Sender: FDA-Public Use
  Company Number: US-INCYTE CORPORATION-2018IN011472

PATIENT

DRUGS (2)
  1. JAKAFI [Suspect]
     Active Substance: RUXOLITINIB
     Indication: MYELOPROLIFERATIVE NEOPLASM
     Dosage: 5 MG, BID
     Route: 048
     Dates: start: 20180724
  2. JAKAFI [Suspect]
     Active Substance: RUXOLITINIB
     Indication: NEPHROGENIC ANAEMIA
     Dosage: 10 MG, BID
     Route: 048
     Dates: start: 20180723

REACTIONS (10)
  - Erythema [Unknown]
  - Blister [Unknown]
  - Asthenia [Unknown]
  - Pneumonia [Fatal]
  - Obstruction [Fatal]
  - Skin exfoliation [Unknown]
  - Off label use [Unknown]
  - Headache [Unknown]
  - Influenza [Fatal]
  - Nausea [Unknown]
